FAERS Safety Report 7202786-X (Version None)
Quarter: 2010Q4

REPORT INFORMATION
  Report Type: 
  Country: None (occurrence: None)
  Receive Date: 20101229
  Receipt Date: 20100922
  Transmission Date: 20110411
  Serious: No
  Sender: FDA-Public Use
  Company Number: US-BAUSCH-2010BL004641

PATIENT
  Age: 69 Year
  Sex: Male

DRUGS (4)
  1. BESIVANCE [Suspect]
     Indication: POSTOPERATIVE CARE
     Route: 047
     Dates: start: 20100718, end: 20100806
  2. BESIVANCE [Suspect]
     Indication: OFF LABEL USE
     Route: 047
     Dates: start: 20100718, end: 20100806
  3. LOTEMAX [Concomitant]
     Indication: POSTOPERATIVE CARE
     Route: 047
  4. XIBROM [Concomitant]
     Indication: POSTOPERATIVE CARE
     Route: 047

REACTIONS (1)
  - EYE PAIN [None]
